FAERS Safety Report 9669485 (Version 1)
Quarter: 2013Q4

REPORT INFORMATION
  Report Type: Spontaneous
  Country: IT (occurrence: IT)
  Receive Date: 20131105
  Receipt Date: 20131105
  Transmission Date: 20140711
  Serious: Yes (Hospitalization)
  Sender: FDA-Public Use
  Company Number: IT-B.I. PHARMACEUTICALS,INC./RIDGEFIELD-2013-BI-34968IT

PATIENT
  Age: 84 Year
  Sex: Female

DRUGS (9)
  1. PRADAXA [Suspect]
     Dosage: 220 MG
     Route: 065
     Dates: start: 20130730, end: 20131004
  2. ALLOPURINOL [Concomitant]
     Dosage: 300 MG
  3. BISOPROLOL FUMARATE [Concomitant]
     Dosage: 2.5 MG
  4. LANOXIN [Concomitant]
     Dosage: 0.0625 MG
  5. TAREG [Concomitant]
     Dosage: 40 MG
  6. TRIATEC HCT [Concomitant]
  7. SECTRAL [Concomitant]
  8. GLIBOMET [Concomitant]
  9. REMINYL [Concomitant]

REACTIONS (1)
  - Haematoma [Not Recovered/Not Resolved]
